FAERS Safety Report 15742536 (Version 1)
Quarter: 2018Q4

REPORT INFORMATION
  Report Type: Spontaneous
  Country: NL (occurrence: NL)
  Receive Date: 20181219
  Receipt Date: 20181219
  Transmission Date: 20190205
  Serious: Yes (Life-Threatening, Hospitalization)
  Sender: FDA-Public Use
  Company Number: PHHY2018NL189777

PATIENT
  Sex: Male

DRUGS (2)
  1. OMEPRAZOLE SANDOZ [Suspect]
     Active Substance: OMEPRAZOLE
     Dosage: UNK
     Route: 065
  2. OMEPRAZOLE SANDOZ [Suspect]
     Active Substance: OMEPRAZOLE
     Indication: PRODUCT USED FOR UNKNOWN INDICATION
     Dosage: 1 DF, UNK
     Route: 065

REACTIONS (9)
  - Feeling drunk [Unknown]
  - Diplopia [Unknown]
  - Product physical issue [Unknown]
  - Syncope [Unknown]
  - Asthenia [Unknown]
  - Dyschromatopsia [Unknown]
  - Drug ineffective [Unknown]
  - Pallor [Unknown]
  - Dizziness [Unknown]
